FAERS Safety Report 5812618-X (Version None)
Quarter: 2008Q3

REPORT INFORMATION
  Report Type: 
  Country: None (occurrence: None)
  Receive Date: 20080714
  Receipt Date: 20080714
  Transmission Date: 20090109
  Serious: Yes (Other)
  Sender: FDA-Public Use
  Company Number: None

PATIENT
  Age: 15 Year
  Sex: Male
  Weight: 68.0396 kg

DRUGS (1)
  1. CHLOROQUINE PHOSPHATE [Suspect]
     Indication: MALARIA PROPHYLAXIS
     Dosage: 1 TAB 1X WEEKLY OTHER
     Route: 050
     Dates: start: 20080623, end: 20080701

REACTIONS (1)
  - CONVULSION [None]
